FAERS Safety Report 13511244 (Version 2)
Quarter: 2017Q2

REPORT INFORMATION
  Report Type: Spontaneous
  Country: FR (occurrence: FR)
  Receive Date: 20170503
  Receipt Date: 20170509
  Transmission Date: 20170830
  Serious: Yes (Other)
  Sender: FDA-Public Use
  Company Number: FR-B.I. PHARMACEUTICALS,INC./RIDGEFIELD-2017-BI-023984

PATIENT
  Age: 62 Year
  Sex: Male

DRUGS (4)
  1. SIFROL [Suspect]
     Active Substance: PRAMIPEXOLE
     Route: 048
     Dates: start: 20170225
  2. AZILECT [Concomitant]
     Active Substance: RASAGILINE MESYLATE
     Indication: PARKINSON^S DISEASE
     Route: 065
     Dates: start: 201507
  3. SIFROL [Suspect]
     Active Substance: PRAMIPEXOLE
     Route: 048
     Dates: end: 20170224
  4. SIFROL [Suspect]
     Active Substance: PRAMIPEXOLE
     Indication: PARKINSON^S DISEASE
     Route: 048
     Dates: start: 201507

REACTIONS (6)
  - Compulsive shopping [Unknown]
  - Weight decreased [Unknown]
  - Muscular weakness [Not Recovered/Not Resolved]
  - Silicotuberculosis [Unknown]
  - Nervous system disorder [Not Recovered/Not Resolved]
  - Sleep attacks [Unknown]

NARRATIVE: CASE EVENT DATE: 201508
